FAERS Safety Report 9701438 (Version 3)
Quarter: 2013Q4

REPORT INFORMATION
  Report Type: Spontaneous
  Country: JP (occurrence: JP)
  Receive Date: 20131121
  Receipt Date: 20131202
  Transmission Date: 20140711
  Serious: Yes (Death, Hospitalization, Other)
  Sender: FDA-Public Use
  Company Number: JP-OTSUKA-JP-2013-15000

PATIENT
  Age: 87 Year
  Sex: Male

DRUGS (6)
  1. SAMSCA [Suspect]
     Indication: CARDIAC FAILURE
     Dosage: 7.5 MG MILLIGRAM(S), DAILY DOSE
     Route: 048
     Dates: start: 20130915, end: 20130916
  2. LASIX [Suspect]
     Dosage: 20 MG MILLIGRAM(S), DAILY DOSE
     Route: 042
     Dates: start: 20130914, end: 20130917
  3. LASIX [Suspect]
     Dosage: 20 MG MILLIGRAM(S), DAILY DOSE
     Route: 042
     Dates: start: 20130930, end: 20131003
  4. CEFTRIAXONE SODIUM [Concomitant]
     Indication: PNEUMONIA
     Dosage: 2 G GRAM(S), DAILY DOSE
     Route: 042
     Dates: start: 20130914
  5. LASIX [Concomitant]
     Dosage: 20 MG MILLIGRAM(S), DAILY DOSE
     Route: 048
     Dates: start: 20130918, end: 20130920
  6. SUNRYTHM [Concomitant]
     Indication: ATRIAL FIBRILLATION
     Dosage: 50 MG MILLIGRAM(S), DAILY DOSE
     Route: 041
     Dates: start: 20130921

REACTIONS (3)
  - Renal failure [Fatal]
  - Acidosis [Unknown]
  - Hypernatraemia [Recovered/Resolved]
